FAERS Safety Report 23741843 (Version 1)
Quarter: 2024Q2

REPORT INFORMATION
  Report Type: Report from Study
  Country: GB (occurrence: GB)
  Receive Date: 20240415
  Receipt Date: 20240415
  Transmission Date: 20240716
  Serious: Yes (Death)
  Sender: FDA-Public Use
  Company Number: GB-CELLTRION INC.-2023GB019960

PATIENT

DRUGS (5)
  1. BEVACIZUMAB [Suspect]
     Active Substance: BEVACIZUMAB
     Indication: Hepatocellular carcinoma
     Dosage: 1100 MILLIGRAM
     Route: 065
     Dates: start: 20230616
  2. ATEZOLIZUMAB [Suspect]
     Active Substance: ATEZOLIZUMAB
     Indication: Hepatocellular carcinoma
     Dosage: 1200 MILLIGRAM
     Route: 041
     Dates: start: 20230616
  3. CODEINE [Concomitant]
     Active Substance: CODEINE
     Indication: Abdominal pain upper
     Dosage: UNK
     Dates: start: 20230728
  4. ENTECAVIR [Concomitant]
     Active Substance: ENTECAVIR
     Dosage: UNK, EVERY 1 DAY
     Dates: start: 202007
  5. AMLODIPINE [Concomitant]
     Active Substance: AMLODIPINE BESYLATE
     Dosage: UNK, EVERY 1 DAY
     Dates: start: 2019

REACTIONS (5)
  - Death [Fatal]
  - Pyrexia [Recovered/Resolved]
  - Diarrhoea [Recovered/Resolved]
  - Hypertension [Not Recovered/Not Resolved]
  - Intentional product use issue [Unknown]

NARRATIVE: CASE EVENT DATE: 20230626
